FAERS Safety Report 5079766-6 (Version None)
Quarter: 2006Q3

REPORT INFORMATION
  Report Type: 
  Country: None (occurrence: None)
  Receive Date: 20060815
  Receipt Date: 20060316
  Transmission Date: 20061208
  Serious: No
  Sender: FDA-Public Use
  Company Number: US-GLAXOSMITHKLINE-A0597827A

PATIENT
  Age: 53 Year
  Sex: Female

DRUGS (2)
  1. TAGAMET HB 200 [Suspect]
     Dates: start: 20060315, end: 20060315
  2. PRILOSEC [Concomitant]

REACTIONS (6)
  - ABDOMINAL DISTENSION [None]
  - DIZZINESS [None]
  - FATIGUE [None]
  - MOBILITY DECREASED [None]
  - NAUSEA [None]
  - PERFORMANCE STATUS DECREASED [None]
